FAERS Safety Report 8569197 (Version 7)
Quarter: 2012Q4

REPORT INFORMATION
  Report Type: 
  Country: IT (occurrence: IT)
  Receive Date: 20120518
  Receipt Date: 20121206
  Transmission Date: 20130627
  Serious: Yes (Life-Threatening, Hospitalization)
  Sender: FDA-Public Use
  Company Number: IT-PFIZER INC-2012117354

PATIENT
  Age: 71 Year
  Sex: Male
  Weight: 80 kg

DRUGS (5)
  1. AXITINIB [Suspect]
     Indication: CARCINOMA HEPATOCELLULAR
     Dosage: 5 mg, 2x/day
     Route: 048
     Dates: start: 20120420, end: 20120502
  2. AXITINIB [Suspect]
     Dosage: 3 mg, 2x/day
     Route: 048
     Dates: start: 20120503, end: 20120511
  3. AMLODIPINE [Concomitant]
     Indication: HYPERTENSION
     Dosage: UNK
  4. LISINOPRIL [Concomitant]
     Indication: HYPERTENSION
     Dosage: UNK
  5. HYDROCHLOROTHIAZIDE [Concomitant]
     Indication: HYPERTENSION
     Dosage: UNK

REACTIONS (1)
  - Coma hepatic [Recovered/Resolved]
